FAERS Safety Report 5449903-X (Version None)
Quarter: 2007Q3

REPORT INFORMATION
  Report Type: 
  Country: None (occurrence: None)
  Receive Date: 20070907
  Receipt Date: 20070829
  Transmission Date: 20080115
  Serious: Yes (Disabling, Other)
  Sender: FDA-Public Use
  Company Number: 2007SP017482

PATIENT
  Age: 57 Year
  Weight: 71.2147 kg

DRUGS (3)
  1. INTRON A [Suspect]
     Indication: HEPATITIS C
     Dates: end: 19900101
  2. INTRON A [Suspect]
     Indication: HEPATITIS C
     Dates: end: 20000101
  3. RIBAVIRIN [Suspect]
     Indication: HEPATITIS C
     Dosage: PO
     Route: 048
     Dates: start: 20000101

REACTIONS (13)
  - ANKLE FRACTURE [None]
  - ARTHRALGIA [None]
  - COLON NEOPLASM [None]
  - DRUG EFFECT DECREASED [None]
  - DYSURIA [None]
  - FATIGUE [None]
  - HEADACHE [None]
  - INFLUENZA [None]
  - MALAISE [None]
  - PAIN [None]
  - STOMACH DISCOMFORT [None]
  - URINE COLOUR ABNORMAL [None]
  - WEIGHT DECREASED [None]
